FAERS Safety Report 23261463 (Version 2)
Quarter: 2023Q4

REPORT INFORMATION
  Report Type: Spontaneous
  Country: US (occurrence: US)
  Receive Date: 20231205
  Receipt Date: 20231211
  Transmission Date: 20240109
  Serious: Yes (Other)
  Sender: FDA-Public Use
  Company Number: US-HORIZON THERAPEUTICS-HZN-2023-008263

PATIENT

DRUGS (2)
  1. UPLIZNA [Suspect]
     Active Substance: INEBILIZUMAB-CDON
     Indication: Neuromyelitis optica spectrum disorder
     Dosage: FIRST INFUSION
     Route: 042
     Dates: start: 202307
  2. UPLIZNA [Suspect]
     Active Substance: INEBILIZUMAB-CDON
     Dosage: SECOND INFUSION
     Route: 042
     Dates: start: 202308

REACTIONS (5)
  - Rash [Not Recovered/Not Resolved]
  - Acne [Unknown]
  - White blood cell count decreased [Unknown]
  - Lupus-like syndrome [Unknown]
  - Migraine [Unknown]

NARRATIVE: CASE EVENT DATE: 20230101
